FAERS Safety Report 5908105-0 (Version None)
Quarter: 2008Q4

REPORT INFORMATION
  Report Type: 
  Country: None (occurrence: None)
  Receive Date: 20081003
  Receipt Date: 20080922
  Transmission Date: 20090506
  Serious: Yes (Other)
  Sender: FDA-Public Use
  Company Number: AU-PFIZER INC-2008080960

PATIENT
  Age: 17 Year
  Sex: Male

DRUGS (1)
  1. DILANTIN [Suspect]
     Indication: PETIT MAL EPILEPSY
     Dosage: DAILY DOSE:600MG

REACTIONS (3)
  - INCORRECT DOSE ADMINISTERED [None]
  - RENAL DISORDER [None]
  - TEMPORAL LOBE EPILEPSY [None]
